FAERS Safety Report 6974433-3 (Version None)
Quarter: 2010Q3

REPORT INFORMATION
  Report Type: 
  Country: None (occurrence: None)
  Receive Date: 20100909
  Receipt Date: 20080403
  Transmission Date: 20110219
  Serious: No
  Sender: FDA-Public Use
  Company Number: US-WYE-H03134408

PATIENT
  Sex: Female
  Weight: 97.16 kg

DRUGS (5)
  1. PROTONIX [Suspect]
     Indication: GASTROOESOPHAGEAL REFLUX DISEASE
     Route: 048
     Dates: end: 20080101
  2. ENBREL [Concomitant]
  3. PREDNISONE [Concomitant]
  4. NORTRIPTYLINE HCL [Concomitant]
  5. EFFEXOR XR [Concomitant]

REACTIONS (3)
  - AMNESIA [None]
  - DISTURBANCE IN ATTENTION [None]
  - VITAMIN B12 DEFICIENCY [None]
